FAERS Safety Report 5738005-0 (Version None)
Quarter: 2008Q2

REPORT INFORMATION
  Report Type: 
  Country: None (occurrence: None)
  Receive Date: 20080509
  Receipt Date: 20080428
  Transmission Date: 20081010
  Serious: Yes (Congenital Anomaly)
  Sender: FDA-Public Use
  Company Number: 100#03#2008-02560

PATIENT

DRUGS (6)
  1. CITALOPRAM HYDROBROMIDE [Suspect]
     Indication: DEPRESSION
     Dosage: 10 MG ORAL
     Route: 048
     Dates: start: 20070416, end: 20080101
  2. CLOTRIMAZOLE [Suspect]
     Indication: DRUG USE FOR UNKNOWN INDICATION
     Dosage: VAGINAL
     Route: 067
     Dates: start: 20080220
  3. IBUPROFEN [Suspect]
     Indication: DRUG USE FOR UNKNOWN INDICATION
     Dosage: 400 MG THREE TIMES DAILY ORAL
     Route: 048
     Dates: start: 20071204, end: 20071204
  4. CODEINE PHOSPHATE AND ACETAMINOPHEN [Suspect]
     Indication: DRUG USE FOR UNKNOWN INDICATION
     Dosage: ORAL
     Route: 048
     Dates: start: 20071029, end: 20071214
  5. POTASSIUM BICARBONATE (POTASSIUM BICARBONATE) [Suspect]
     Indication: DRUG USE FOR UNKNOWN INDICATION
     Dates: start: 20080211
  6. SODIUM ALGINATE (SODIUM ALGINATE) [Suspect]
     Indication: DRUG USE FOR UNKNOWN INDICATION
     Dates: start: 20080211

REACTIONS (4)
  - ABORTION INDUCED [None]
  - DRUG EXPOSURE DURING PREGNANCY [None]
  - MATERNAL DRUGS AFFECTING FOETUS [None]
  - MULTIPLE CONGENITAL ABNORMALITIES [None]
